FAERS Safety Report 4411213-7 (Version None)
Quarter: 2004Q3

REPORT INFORMATION
  Report Type: 
  Country: None (occurrence: None)
  Receive Date: 20040727
  Receipt Date: 20040211
  Transmission Date: 20050211
  Serious: Yes (Hospitalization)
  Sender: FDA-Public Use
  Company Number: FR-JNJFOC-20040202816

PATIENT
  Age: 58 Year
  Sex: Male

DRUGS (2)
  1. IMODIUM [Suspect]
     Indication: PROPHYLAXIS
     Dosage: ORAL
     Route: 048
     Dates: start: 20031216, end: 20040101
  2. COLCHICINE (COLCHICINE) [Suspect]
     Indication: REFLEX SYMPATHETIC DYSTROPHY
     Dates: start: 20031216, end: 20040101

REACTIONS (5)
  - DRUG INTERACTION [None]
  - ECZEMA [None]
  - IMPETIGO [None]
  - PYREXIA [None]
  - TOXIC SKIN ERUPTION [None]
